FAERS Safety Report 4778045-1 (Version None)
Quarter: 2005Q3

REPORT INFORMATION
  Report Type: 
  Country: None (occurrence: None)
  Receive Date: 20050926
  Receipt Date: 20050915
  Transmission Date: 20060218
  Serious: Yes (Other)
  Sender: FDA-Public Use
  Company Number: PHBS2005US13710

PATIENT
  Age: 27 Year
  Sex: Female

DRUGS (1)
  1. METOPROLOL [Suspect]
     Indication: MITRAL VALVE STENOSIS
     Dosage: 50 MG, BID
     Route: 048

REACTIONS (5)
  - ATRIAL THROMBOSIS [None]
  - CAESAREAN SECTION [None]
  - DRUG EXPOSURE DURING PREGNANCY [None]
  - HAEMORRHAGE [None]
  - MITRAL VALVE REPLACEMENT [None]
